FAERS Safety Report 25168147 (Version 1)
Quarter: 2025Q2

REPORT INFORMATION
  Report Type: Spontaneous
  Country: US (occurrence: None)
  Receive Date: 20250404
  Receipt Date: 20250404
  Transmission Date: 20250717
  Serious: Yes (Hospitalization)
  Sender: FDA-CTU
  Company Number: None

PATIENT
  Age: 16 Year
  Sex: Female

DRUGS (16)
  1. TRIKAFTA [Suspect]
     Active Substance: ELEXACAFTOR\IVACAFTOR\TEZACAFTOR
     Indication: Cystic fibrosis
     Dosage: OTHER QUANTITY : 300/150/225 MG;?FREQUENCY : DAILY;?
     Route: 048
     Dates: start: 20230918
  2. DEXCOM G7 [Concomitant]
  3. PREGABALIN [Concomitant]
     Active Substance: PREGABALIN
  4. OMEPRAZOLE [Concomitant]
     Active Substance: OMEPRAZOLE
  5. MOXIFLOXACIN [Concomitant]
     Active Substance: MOXIFLOXACIN
  6. ZENPEP [Concomitant]
     Active Substance: PANCRELIPASE AMYLASE\PANCRELIPASE LIPASE\PANCRELIPASE PROTEASE
  7. SOD FLUORIDE/POT NITRATE [Concomitant]
  8. ACETYLCYSTEINE 20% [Concomitant]
  9. DULERA [Concomitant]
     Active Substance: FORMOTEROL FUMARATE DIHYDRATE\MOMETASONE FUROATE
  10. VENTOLIN HFA [Concomitant]
     Active Substance: ALBUTEROL SULFATE
  11. ALBUTEROL [Concomitant]
     Active Substance: ALBUTEROL
  12. PULMOZYME [Concomitant]
     Active Substance: DORNASE ALFA
  13. MVW ORANGE [Concomitant]
  14. LANTUS SOLOSTAR [Concomitant]
     Active Substance: INSULIN GLARGINE
  15. INSULIN LISPRO JUNIOR [Concomitant]
  16. B-D PEN NEEDLE NANO [Concomitant]

REACTIONS (1)
  - Pneumonia [None]

NARRATIVE: CASE EVENT DATE: 20250401
